APPROVED DRUG PRODUCT: TRANDOLAPRIL
Active Ingredient: TRANDOLAPRIL
Strength: 4MG
Dosage Form/Route: TABLET;ORAL
Application: A077522 | Product #003 | TE Code: AB
Applicant: LUPIN LTD
Approved: Jun 12, 2007 | RLD: No | RS: Yes | Type: RX